FAERS Safety Report 10638650 (Version 1)
Quarter: 2014Q4

REPORT INFORMATION
  Report Type: Spontaneous
  Country: US (occurrence: None)
  Receive Date: 20141205
  Receipt Date: 20141205
  Transmission Date: 20150529
  Serious: Yes (Hospitalization)
  Sender: FDA-Public Use
  Company Number: None

PATIENT
  Age: 63 Year
  Sex: Female
  Weight: 95.4 kg

DRUGS (1)
  1. PRAVASTATIN SODIUM. [Suspect]
     Active Substance: PRAVASTATIN SODIUM

REACTIONS (12)
  - Fluid overload [None]
  - Pulmonary oedema [None]
  - Septic embolus [None]
  - Lung consolidation [None]
  - Atrial fibrillation [None]
  - Atelectasis [None]
  - Pleural effusion [None]
  - Pneumonia staphylococcal [None]
  - Respiratory distress [None]
  - Leukaemic infiltration [None]
  - Pulmonary cavitation [None]
  - Renal tubular necrosis [None]

NARRATIVE: CASE EVENT DATE: 20141108
